FAERS Safety Report 9178333 (Version 1)
Quarter: 2013Q1

REPORT INFORMATION
  Report Type: Spontaneous
  Country: US (occurrence: None)
  Receive Date: 20120601
  Receipt Date: 20120601
  Transmission Date: 20140127
  Serious: Yes (Other)
  Sender: FDA-Public Use
  Company Number: 342617

PATIENT
  Age: 58 Year
  Sex: Female
  Weight: 61.7 kg

DRUGS (2)
  1. ACTIVELLA [Suspect]
     Indication: MENOPAUSE
     Route: 048
  2. ESTRADIOL W/NORETHISTERONE (ESTRADIOL, NORETHISTERONE) [Suspect]
     Indication: MENOPAUSE
     Route: 048
     Dates: end: 20111205

REACTIONS (1)
  - Breast cancer [None]
